FAERS Safety Report 22658656 (Version 1)
Quarter: 2023Q2

REPORT INFORMATION
  Report Type: Report from Study
  Country: US (occurrence: US)
  Receive Date: 20230630
  Receipt Date: 20230630
  Transmission Date: 20230721
  Serious: Yes (Other)
  Sender: FDA-Public Use
  Company Number: US-PHARMAAND-2023PHR00052

PATIENT
  Age: 63 Year
  Sex: Female

DRUGS (1)
  1. RUBRACA [Suspect]
     Active Substance: RUCAPARIB CAMSYLATE
     Indication: Ovarian cancer
     Dosage: 600 MG, 2X/DAY
     Route: 048
     Dates: start: 20230528

REACTIONS (5)
  - Neuropathy peripheral [Unknown]
  - Pollakiuria [Unknown]
  - Peripheral coldness [Unknown]
  - Fatigue [Unknown]
  - Product dose omission issue [Unknown]
